FAERS Safety Report 6498924-7 (Version None)
Quarter: 2009Q4

REPORT INFORMATION
  Report Type: 
  Country: None (occurrence: None)
  Receive Date: 20091127
  Receipt Date: 20081119
  Transmission Date: 20100525
  Serious: Yes (Other)
  Sender: FDA-Public Use
  Company Number: 281572

PATIENT
  Age: 57 Year
  Sex: Female

DRUGS (1)
  1. NOVOLOG [Suspect]
     Indication: BLOOD GLUCOSE INCREASED
     Dosage: 9 IU, SINGLE, SUBCUTANEOUS
     Route: 058
     Dates: start: 20081113, end: 20081113

REACTIONS (1)
  - HYPERSENSITIVITY [None]
